FAERS Safety Report 4986488-6 (Version None)
Quarter: 2006Q2

REPORT INFORMATION
  Report Type: 
  Country: None (occurrence: None)
  Receive Date: 20060428
  Receipt Date: 20031030
  Transmission Date: 20061013
  Serious: Yes (Death, Hospitalization)
  Sender: FDA-Public Use
  Company Number: BR-ROCHE-350339

PATIENT
  Age: 63 Year
  Sex: Male
  Weight: 68.6 kg

DRUGS (11)
  1. ZENAPAX [Suspect]
     Route: 042
     Dates: start: 20031009, end: 20031009
  2. ZENAPAX [Suspect]
     Route: 042
     Dates: end: 20031125
  3. MYCOPHENOLATE MOFETIL [Suspect]
     Route: 048
     Dates: start: 20031009, end: 20031125
  4. SIROLIMUS [Suspect]
     Route: 048
     Dates: start: 20031009, end: 20031125
  5. PREDNISONE [Suspect]
     Route: 048
     Dates: start: 20031010
  6. PREDNISONE [Suspect]
     Route: 048
     Dates: end: 20051125
  7. SULPHAMETHOXAZOLE [Concomitant]
     Route: 048
     Dates: start: 20031009
  8. TRIMETOPRIM [Concomitant]
     Route: 048
     Dates: start: 20031009
  9. PANTOPRAZOL [Concomitant]
     Dates: start: 20031009
  10. COMPLEX B [Concomitant]
     Dates: start: 20051022
  11. ACID FOLIC [Concomitant]
     Dates: start: 20031022

REACTIONS (10)
  - ABDOMINAL PAIN [None]
  - ACINETOBACTER INFECTION [None]
  - CARDIO-RESPIRATORY ARREST [None]
  - CULTURE URINE POSITIVE [None]
  - PULMONARY EMBOLISM [None]
  - PYURIA [None]
  - RESPIRATORY DISTRESS [None]
  - SEPSIS [None]
  - URETERIC FISTULA [None]
  - VOMITING [None]
